FAERS Safety Report 5721313-7 (Version None)
Quarter: 2008Q2

REPORT INFORMATION
  Report Type: 
  Country: None (occurrence: None)
  Receive Date: 20080428
  Receipt Date: 20080428
  Transmission Date: 20081010
  Serious: No
  Sender: FDA-Public Use
  Company Number: None

PATIENT
  Age: 39 Year
  Sex: Female
  Weight: 52.6173 kg

DRUGS (1)
  1. CHANTIX [Suspect]
     Indication: SMOKING CESSATION THERAPY
     Dosage: 05MG/1MG TWICE A DAY PO
     Route: 048
     Dates: start: 20080304, end: 20080316

REACTIONS (9)
  - ABNORMAL DREAMS [None]
  - AGGRESSION [None]
  - CONTUSION [None]
  - CRYING [None]
  - EMOTIONAL DISORDER [None]
  - FALL [None]
  - FATIGUE [None]
  - SCREAMING [None]
  - SLEEP TALKING [None]
